FAERS Safety Report 24135079 (Version 1)
Quarter: 2024Q3

REPORT INFORMATION
  Report Type: Report from Study
  Country: PE (occurrence: PE)
  Receive Date: 20240725
  Receipt Date: 20240725
  Transmission Date: 20241017
  Serious: Yes (Other)
  Sender: ROCHE
  Company Number: PE-ROCHE-10000025464

PATIENT
  Age: 57 Year
  Sex: Female

DRUGS (1)
  1. AVASTIN [Suspect]
     Active Substance: BEVACIZUMAB
     Indication: Colon cancer
     Dosage: FREQUENCY WAS NOT REPORTED
     Route: 042

REACTIONS (4)
  - Condition aggravated [Unknown]
  - Malaise [Unknown]
  - Malignant neoplasm progression [Unknown]
  - Drug ineffective [Unknown]
